FAERS Safety Report 14487802 (Version 7)
Quarter: 2020Q2

REPORT INFORMATION
  Report Type: Spontaneous
  Country: US (occurrence: US)
  Receive Date: 20180205
  Receipt Date: 20200429
  Transmission Date: 20200713
  Serious: No
  Sender: FDA-Public Use
  Company Number: US-PFIZER INC-2018043346

PATIENT
  Age: 76 Year
  Sex: Female

DRUGS (4)
  1. PREMPRO [Suspect]
     Active Substance: ESTROGENS, CONJUGATED\MEDROXYPROGESTERONE ACETATE
     Indication: HORMONE REPLACEMENT THERAPY
     Dosage: 1 DF, DAILY
     Route: 048
  2. PREMPRO [Suspect]
     Active Substance: ESTROGENS, CONJUGATED\MEDROXYPROGESTERONE ACETATE
     Indication: DEPRESSIVE SYMPTOM
     Dosage: UNK [ESTROGENS CONJUGATED: 0.625MG/MEDROXYPROGESTERONE ACETATE: 2.5MG]
  3. PREMPRO [Suspect]
     Active Substance: ESTROGENS, CONJUGATED\MEDROXYPROGESTERONE ACETATE
     Indication: POSTMENOPAUSE
     Dosage: 1 DF, DAILY ( (0.625-2.5 MG PER TABLET), (TAKE 1 TABLET BY MOUTH DAILY))
     Route: 048
  4. PREMPRO [Suspect]
     Active Substance: ESTROGENS, CONJUGATED\MEDROXYPROGESTERONE ACETATE
     Indication: MENOPAUSE
     Dosage: UNK [ESTROGENS CONJUGATED: 0.625MG/MEDROXYPROGESTERONE ACETATE: 5MG]

REACTIONS (3)
  - Back disorder [Unknown]
  - Vaginal haemorrhage [Unknown]
  - Product dispensing error [Unknown]
